FAERS Safety Report 6267061-9 (Version None)
Quarter: 2009Q3

REPORT INFORMATION
  Report Type: 
  Country: None (occurrence: None)
  Receive Date: 20090710
  Receipt Date: 20090710
  Transmission Date: 20100115
  Serious: Yes (Other)
  Sender: FDA-Public Use
  Company Number: None

PATIENT
  Age: 59 Year
  Sex: Female
  Weight: 63.5036 kg

DRUGS (15)
  1. SAVELLA [Suspect]
     Indication: FIBROMYALGIA
     Dosage: 50 MG 2 X DAILY PO
     Route: 048
     Dates: start: 20090626, end: 20090707
  2. CELEBREX [Concomitant]
  3. LAMICTAL [Concomitant]
  4. PAXIL [Concomitant]
  5. SYNTHROID [Concomitant]
  6. HTNZ [Concomitant]
  7. NEURONTIN [Concomitant]
  8. LDHRT [Concomitant]
  9. PRILOSEC [Concomitant]
  10. ZOCOR [Concomitant]
  11. TYLENOL (CAPLET) [Concomitant]
  12. CALC., [Concomitant]
  13. VIT B 12 [Concomitant]
  14. MAGNESIUM SULFATE [Concomitant]
  15. OTHERS [Concomitant]

REACTIONS (16)
  - CHILLS [None]
  - COUGH [None]
  - DRUG INTERACTION [None]
  - DRUG PRESCRIBING ERROR [None]
  - DYSPNOEA [None]
  - FATIGUE [None]
  - HYPERHIDROSIS [None]
  - INSOMNIA [None]
  - MALAISE [None]
  - OROPHARYNGEAL PAIN [None]
  - PAIN [None]
  - PILOERECTION [None]
  - PYREXIA [None]
  - RHINORRHOEA [None]
  - SEROTONIN SYNDROME [None]
  - THROAT IRRITATION [None]
